FAERS Safety Report 4541748-8 (Version None)
Quarter: 2004Q4

REPORT INFORMATION
  Report Type: 
  Country: None (occurrence: None)
  Receive Date: 20041227
  Receipt Date: 20041220
  Transmission Date: 20050328
  Serious: Yes (Other)
  Sender: FDA-Public Use
  Company Number: 2003GB01715

PATIENT
  Age: 50 Year
  Sex: Female
  Weight: 50 kg

DRUGS (3)
  1. QUETIAPINE [Suspect]
     Indication: DEPRESSION
     Dosage: 25 MG HS PO
     Route: 048
     Dates: start: 20030506, end: 20030603
  2. EFFEXOR [Concomitant]
  3. THYROXINE [Concomitant]

REACTIONS (1)
  - NEUTROPENIA [None]
